FAERS Safety Report 15245718 (Version 1)
Quarter: 2018Q3

REPORT INFORMATION
  Report Type: Spontaneous
  Country: GB (occurrence: GB)
  Receive Date: 20180806
  Receipt Date: 20180806
  Transmission Date: 20181010
  Serious: Yes (Congenital Anomaly)
  Sender: FDA-Public Use
  Company Number: GB-TEVA-2018-GB-935734

PATIENT
  Sex: Female

DRUGS (1)
  1. SODIUM VALPROATE [Suspect]
     Active Substance: VALPROATE SODIUM
     Route: 064

REACTIONS (3)
  - Dyslexia [Unknown]
  - Foetal exposure during pregnancy [Unknown]
  - Dyscalculia [Unknown]
